FAERS Safety Report 24202123 (Version 1)
Quarter: 2024Q3

REPORT INFORMATION
  Report Type: Spontaneous
  Country: US (occurrence: US)
  Receive Date: 20240812
  Receipt Date: 20240812
  Transmission Date: 20241017
  Serious: No
  Sender: BOEHRINGER INGELHEIM
  Company Number: US-BoehringerIngelheim-2024-BI-045124

PATIENT
  Age: 79 Year
  Sex: Female

DRUGS (5)
  1. JARDIANCE [Suspect]
     Active Substance: EMPAGLIFLOZIN
     Indication: Chronic kidney disease
     Dosage: DAILY DOSE: 10 MILLIGRAM(S)
     Dates: start: 202404
  2. EDARBI [Concomitant]
     Active Substance: AZILSARTAN KAMEDOXOMIL
     Indication: Product used for unknown indication
  3. CARVEDILOL [Concomitant]
     Active Substance: CARVEDILOL
     Indication: Product used for unknown indication
  4. ALPRAZOLAM [Concomitant]
     Active Substance: ALPRAZOLAM
     Indication: Product used for unknown indication
  5. SYNTHROID [Concomitant]
     Active Substance: LEVOTHYROXINE SODIUM
     Indication: Product used for unknown indication

REACTIONS (3)
  - Abdominal discomfort [Not Recovered/Not Resolved]
  - Tremor [Not Recovered/Not Resolved]
  - Photosensitivity reaction [Not Recovered/Not Resolved]

NARRATIVE: CASE EVENT DATE: 20240601
